FAERS Safety Report 9015552 (Version 1)
Quarter: 2013Q1

REPORT INFORMATION
  Report Type: Spontaneous
  Country: FR (occurrence: None)
  Receive Date: 20130103
  Receipt Date: 20130103
  Transmission Date: 20140127
  Serious: Yes (Other)
  Sender: FDA-Public Use
  Company Number: 2012P1068314

PATIENT
  Age: 42 Year
  Sex: Male

DRUGS (3)
  1. AMIKACIN [Suspect]
     Indication: ARTHRITIS BACTERIAL
  2. CLINDAMYCIN [Concomitant]
  3. VANCOMYCIN [Concomitant]

REACTIONS (2)
  - Drug reaction with eosinophilia and systemic symptoms [None]
  - Type IV hypersensitivity reaction [None]
